FAERS Safety Report 13028391 (Version 1)
Quarter: 2016Q4

REPORT INFORMATION
  Report Type: Spontaneous
  Country: BE (occurrence: BE)
  Receive Date: 20161214
  Receipt Date: 20161214
  Transmission Date: 20170207
  Serious: Yes (Death, Life-Threatening)
  Sender: FDA-Public Use
  Company Number: BE-PFIZER INC-2016574418

PATIENT
  Age: 20 Day
  Sex: Male
  Weight: 4.02 kg

DRUGS (4)
  1. DOXYCYCLINE MONOHYDRATE [Suspect]
     Active Substance: DOXYCYCLINE
     Indication: MENINGITIS NEONATAL
     Dosage: UNK
  2. AMIKACIN [Concomitant]
     Active Substance: AMIKACIN
     Indication: MENINGITIS NEONATAL
     Dosage: UNK
  3. AMPICILLIN [Concomitant]
     Active Substance: AMPICILLIN
     Indication: MENINGITIS NEONATAL
     Dosage: UNK
  4. CEFOTAXIME [Concomitant]
     Active Substance: CEFOTAXIME SODIUM
     Indication: MENINGITIS NEONATAL
     Dosage: UNK

REACTIONS (2)
  - Drug administered to patient of inappropriate age [Fatal]
  - Drug ineffective [Fatal]
